FAERS Safety Report 18107730 (Version 1)
Quarter: 2020Q3

REPORT INFORMATION
  Report Type: Spontaneous
  Country: US (occurrence: US)
  Receive Date: 20200803
  Receipt Date: 20200803
  Transmission Date: 20201103
  Serious: No
  Sender: FDA-Public Use
  Company Number: US-ENDO PHARMACEUTICALS INC-2019-110051

PATIENT
  Age: 60 Year
  Sex: Female

DRUGS (2)
  1. TRANYLCYPROMINE SULFATE. [Suspect]
     Active Substance: TRANYLCYPROMINE SULFATE
     Indication: MAJOR DEPRESSION
     Dosage: 10 MG, QID
     Route: 065
     Dates: start: 20190701
  2. RISPERDAL [Concomitant]
     Active Substance: RISPERIDONE
     Indication: MOOD ALTERED

REACTIONS (2)
  - Somnolence [Not Recovered/Not Resolved]
  - Fatigue [Not Recovered/Not Resolved]

NARRATIVE: CASE EVENT DATE: 20190918
